FAERS Safety Report 7701600-3 (Version None)
Quarter: 2011Q3

REPORT INFORMATION
  Report Type: 
  Country: None (occurrence: None)
  Receive Date: 20110822
  Receipt Date: 20101020
  Transmission Date: 20111222
  Serious: No
  Sender: FDA-Public Use
  Company Number: US-BRISTOL-MYERS SQUIBB COMPANY-15343916

PATIENT
  Sex: Male

DRUGS (1)
  1. CEENU [Suspect]

REACTIONS (2)
  - DYSPHAGIA [None]
  - NAUSEA [None]
